FAERS Safety Report 9523764 (Version 3)
Quarter: 2014Q2

REPORT INFORMATION
  Report Type: Report from Study
  Country: FR (occurrence: FR)
  Receive Date: 20130915
  Receipt Date: 20140416
  Transmission Date: 20141212
  Serious: Yes (Death, Hospitalization)
  Sender: FDA-Public Use
  Company Number: PHHY2013FR101733

PATIENT
  Age: 86 Year
  Sex: Female
  Weight: 65 kg

DRUGS (5)
  1. EXELON [Suspect]
     Indication: DEMENTIA
     Dosage: 4.6 MG/ 24 HOURS
     Route: 062
     Dates: start: 20121110, end: 20121209
  2. EXELON [Suspect]
     Dosage: 9.5 MG/ 24 HOURS
     Route: 062
     Dates: start: 20121210, end: 20130617
  3. ALLOPURINOL [Concomitant]
     Indication: BLOOD URIC ACID INCREASED
     Dosage: 200 MG, QD
     Route: 048
     Dates: start: 201208, end: 20130617
  4. SEROPLEX [Concomitant]
     Indication: DEPRESSION
     Dosage: 10 MG, QD
     Route: 048
     Dates: start: 20120510, end: 20130617
  5. ZYMAD [Concomitant]
     Indication: VITAMIN D DEFICIENCY
     Dosage: 1 DF, (TRIMESTER)
     Route: 048
     Dates: end: 20130617

REACTIONS (5)
  - Cardiac failure [Fatal]
  - Bronchitis [Unknown]
  - Pulmonary oedema [Unknown]
  - Tachyarrhythmia [Unknown]
  - Dyspnoea [Not Recovered/Not Resolved]
